FAERS Safety Report 15891820 (Version 6)
Quarter: 2019Q3

REPORT INFORMATION
  Report Type: Spontaneous
  Country: US (occurrence: US)
  Receive Date: 20190130
  Receipt Date: 20190807
  Transmission Date: 20191004
  Serious: Yes (Hospitalization, Other)
  Sender: FDA-Public Use
  Company Number: US-PFIZER INC-2019035899

PATIENT
  Age: 48 Year
  Sex: Female

DRUGS (1)
  1. DAPTOMYCIN. [Suspect]
     Active Substance: DAPTOMYCIN
     Indication: INFECTION
     Dosage: UNK
     Route: 042

REACTIONS (9)
  - Liver disorder [Recovered/Resolved]
  - Asthenia [Unknown]
  - Drug ineffective [Recovered/Resolved]
  - Bilirubin urine present [Unknown]
  - Ill-defined disorder [Unknown]
  - Bladder disorder [Unknown]
  - Urinary tract infection [Recovered/Resolved]
  - Blood bilirubin abnormal [Unknown]
  - Hepatic enzyme increased [Unknown]
